FAERS Safety Report 8692869 (Version 3)
Quarter: 2012Q4

REPORT INFORMATION
  Report Type: 
  Country: JP (occurrence: JP)
  Receive Date: 20120730
  Receipt Date: 20120927
  Transmission Date: 20130627
  Serious: Yes (Hospitalization)
  Sender: FDA-Public Use
  Company Number: JP-ELI_LILLY_AND_COMPANY-JP201207002135

PATIENT
  Age: 78 Year
  Sex: Female

DRUGS (5)
  1. FORTEO [Suspect]
     Indication: OSTEOPOROSIS
     Dosage: 20 ug, qd
     Route: 058
     Dates: start: 20120401, end: 20120628
  2. FORTEO [Suspect]
     Dosage: UNK
     Route: 058
     Dates: start: 20120821
  3. PREDONINE [Concomitant]
     Indication: RHEUMATOID ARTHRITIS
     Dosage: 6 mg, qd
     Route: 048
     Dates: start: 201104
  4. TAGAMET                            /00397401/ [Concomitant]
     Indication: GASTROINTESTINAL DISORDER
     Dosage: 200 mg, UNK
     Route: 048
     Dates: start: 201104
  5. FORSENID [Concomitant]
     Indication: CONSTIPATION
     Dosage: 12 mg, UNK
     Route: 048
     Dates: start: 201104

REACTIONS (1)
  - Nasopharyngitis [Recovered/Resolved]
